FAERS Safety Report 7008624-2 (Version None)
Quarter: 2010Q3

REPORT INFORMATION
  Report Type: 
  Country: None (occurrence: None)
  Receive Date: 20100922
  Receipt Date: 20100915
  Transmission Date: 20110219
  Serious: Yes (Hospitalization)
  Sender: FDA-Public Use
  Company Number: PHHO2010FR13960

PATIENT
  Sex: Male
  Weight: 92 kg

DRUGS (4)
  1. CERTICAN [Suspect]
     Indication: HEART TRANSPLANT
     Dosage: 0.75 MG, BID
     Route: 048
     Dates: start: 20100818
  2. MYCOPHENOLATE MOFETIL [Suspect]
     Indication: HEART TRANSPLANT
     Dosage: 250 MG
     Route: 048
  3. TACROLIMUS [Suspect]
     Indication: HEART TRANSPLANT
     Dosage: 2.5 MG, BID
     Route: 048
     Dates: start: 19980101
  4. EPOGEN [Concomitant]
     Indication: POLYCYTHAEMIA

REACTIONS (1)
  - LUNG DISORDER [None]
